FAERS Safety Report 6715487-9 (Version None)
Quarter: 2010Q2

REPORT INFORMATION
  Report Type: 
  Country: None (occurrence: None)
  Receive Date: 20100507
  Receipt Date: 20100427
  Transmission Date: 20101027
  Serious: Yes (Death, Other)
  Sender: FDA-Public Use
  Company Number: US-SANOFI-AVENTIS-2010SA024597

PATIENT
  Age: 66 Year
  Sex: Male
  Weight: 80.29 kg

DRUGS (8)
  1. MULTAQ [Suspect]
     Indication: ATRIAL FIBRILLATION
     Route: 048
     Dates: start: 20100202, end: 20100323
  2. COREG [Concomitant]
  3. DIGOXIN [Concomitant]
  4. DIGOXIN [Concomitant]
     Dates: start: 20100201
  5. COUMADIN [Concomitant]
  6. ASPIRIN [Concomitant]
  7. LASIX [Concomitant]
  8. ZAROXOLYN [Concomitant]

REACTIONS (6)
  - ATRIAL FIBRILLATION [None]
  - BRAIN DEATH [None]
  - BRAIN NATRIURETIC PEPTIDE INCREASED [None]
  - DYSPNOEA EXERTIONAL [None]
  - ELECTROMECHANICAL DISSOCIATION [None]
  - RESPIRATORY FAILURE [None]
